FAERS Safety Report 13081811 (Version 2)
Quarter: 2017Q1

REPORT INFORMATION
  Report Type: Spontaneous
  Country: US (occurrence: US)
  Receive Date: 20170103
  Receipt Date: 20170216
  Transmission Date: 20170428
  Serious: Yes (Hospitalization, Other)
  Sender: FDA-Public Use
  Company Number: US-PFIZER INC-2016602658

PATIENT
  Age: 56 Year
  Sex: Female
  Weight: 72.57 kg

DRUGS (9)
  1. LYRICA [Suspect]
     Active Substance: PREGABALIN
     Indication: NERVE INJURY
     Dosage: 200 MG, 3X/DAY
     Route: 048
     Dates: start: 20161123
  2. LYRICA [Suspect]
     Active Substance: PREGABALIN
     Dosage: UNK
     Dates: start: 20161123
  3. PLETAL [Concomitant]
     Active Substance: CILOSTAZOL
     Dosage: 50 MG, 2X/DAY
     Route: 048
  4. ROXICODONE [Concomitant]
     Active Substance: OXYCODONE HYDROCHLORIDE
     Indication: PAIN
     Dosage: 10 MG, AS NEEDED [EVERY 8 (EIGHT) HOURS AS NEEDED]
     Route: 048
     Dates: start: 20170123
  5. ASPIRIN. [Concomitant]
     Active Substance: ASPIRIN
     Dosage: 81 MG, DAILY
     Route: 048
  6. FERROUS SULFATE. [Concomitant]
     Active Substance: FERROUS SULFATE
     Dosage: 325 MG, DAILY [65 MG IRON]
     Route: 048
     Dates: start: 20170125
  7. CHANTIX [Suspect]
     Active Substance: VARENICLINE TARTRATE
     Indication: SMOKING CESSATION THERAPY
     Dosage: 0.5 MG, 2X/DAY
     Route: 048
     Dates: start: 2016
  8. CHANTIX [Suspect]
     Active Substance: VARENICLINE TARTRATE
     Dosage: 1 MG, 2X/DAY
     Route: 048
     Dates: start: 20170112
  9. PLAVIX [Concomitant]
     Active Substance: CLOPIDOGREL BISULFATE
     Dosage: 75 MG, DAILY
     Route: 048

REACTIONS (6)
  - Localised infection [Recovering/Resolving]
  - Nausea [Recovered/Resolved]
  - Thrombosis [Recovered/Resolved]
  - Malaise [Recovered/Resolved]
  - Oedema peripheral [Unknown]
  - Laceration [Recovering/Resolving]

NARRATIVE: CASE EVENT DATE: 2016
